FAERS Safety Report 12731553 (Version 2)
Quarter: 2018Q4

REPORT INFORMATION
  Report Type: Spontaneous
  Country: JP (occurrence: JP)
  Receive Date: 20160912
  Receipt Date: 20181105
  Transmission Date: 20190204
  Serious: Yes (Hospitalization, Other)
  Sender: FDA-Public Use
  Company Number: JP-UNITED THERAPEUTICS-UNT-2016-014196

PATIENT
  Age: 62 Year
  Sex: Female

DRUGS (3)
  1. RIOCIGUAT. [Concomitant]
     Active Substance: RIOCIGUAT
     Indication: PULMONARY ARTERIAL HYPERTENSION
     Dosage: 7.5 MG
     Route: 048
     Dates: start: 20160725
  2. REMODULIN [Suspect]
     Active Substance: TREPROSTINIL
     Indication: PULMONARY ARTERIAL HYPERTENSION
     Dosage: UNK
     Route: 058
     Dates: start: 20160725
  3. MACITENTAN [Concomitant]
     Active Substance: MACITENTAN
     Indication: PULMONARY ARTERIAL HYPERTENSION
     Dosage: 10 MG
     Route: 048
     Dates: start: 20160725

REACTIONS (3)
  - Enterocolitis [Not Recovered/Not Resolved]
  - Infusion site pain [Not Recovered/Not Resolved]
  - Groin pain [Unknown]

NARRATIVE: CASE EVENT DATE: 201608
